FAERS Safety Report 5286624-0 (Version None)
Quarter: 2007Q2

REPORT INFORMATION
  Report Type: 
  Country: None (occurrence: None)
  Receive Date: 20070404
  Receipt Date: 20070330
  Transmission Date: 20071010
  Serious: Yes (Hospitalization)
  Sender: FDA-Public Use
  Company Number: HU-GLAXOSMITHKLINE-B0460373A

PATIENT
  Age: 68 Year
  Sex: Male
  Weight: 118 kg

DRUGS (5)
  1. PLACEBO [Suspect]
     Indication: PROPHYLAXIS OF NAUSEA AND VOMITING
     Dates: start: 20070206
  2. ZOFRAN [Suspect]
     Indication: PROPHYLAXIS OF NAUSEA AND VOMITING
     Dosage: 32MG CYCLIC
     Route: 042
     Dates: start: 20070206
  3. DEXAMETHASONE 4MG TAB [Suspect]
     Indication: PROPHYLAXIS OF NAUSEA AND VOMITING
     Route: 048
     Dates: start: 20070206
  4. CISPLATIN [Concomitant]
     Indication: CHEMOTHERAPY
     Dates: start: 20070206, end: 20070208
  5. ETOPOSIDE [Concomitant]
     Indication: CHEMOTHERAPY
     Dates: start: 20070206, end: 20070208

REACTIONS (1)
  - BLOOD CREATININE INCREASED [None]
